FAERS Safety Report 19166772 (Version 1)
Quarter: 2021Q2

REPORT INFORMATION
  Report Type: Spontaneous
  Country: ER (occurrence: CH)
  Receive Date: 20210422
  Receipt Date: 20210422
  Transmission Date: 20210717
  Serious: Yes (Other)
  Sender: FDA-Public Use
  Company Number: ER-TWI PHARMACEUTICAL, INC-2021SCTW000029

PATIENT

DRUGS (1)
  1. DICLOFENAC SODIUM TOPICAL SOLUTION [Suspect]
     Active Substance: DICLOFENAC SODIUM
     Indication: PRODUCT USED FOR UNKNOWN INDICATION
     Dosage: UNK
     Route: 061

REACTIONS (1)
  - Rhabdomyolysis [Unknown]
